FAERS Safety Report 10271563 (Version 3)
Quarter: 2014Q3

REPORT INFORMATION
  Report Type: Spontaneous
  Country: US (occurrence: US)
  Receive Date: 20140701
  Receipt Date: 20140717
  Transmission Date: 20150326
  Serious: No
  Sender: FDA-Public Use
  Company Number: US-009507513-1406USA013434

PATIENT
  Age: 25 Year
  Sex: Female
  Weight: 68.27 kg

DRUGS (5)
  1. FOLLISTIM [Suspect]
     Active Substance: FOLLITROPIN
     Indication: OVULATION INDUCTION
     Dosage: TOTAL DAILY DOSE: 250-300 IU
     Route: 058
     Dates: start: 20140525, end: 20140527
  2. LUPRON [Concomitant]
     Active Substance: LEUPROLIDE ACETATE
     Dosage: 1/2 DOSE; 0.5 UNITS
     Dates: start: 20140521, end: 20140521
  3. LUPRON [Concomitant]
     Active Substance: LEUPROLIDE ACETATE
     Dosage: 1/2 DOSE; 0.5 UNITS
     Dates: start: 20140525, end: 20140602
  4. FOLLISTIM [Suspect]
     Active Substance: FOLLITROPIN
     Dosage: TOTAL DAILY DOSE: 250-300 IU
     Route: 058
     Dates: start: 20140528, end: 20140601
  5. LUPRON [Concomitant]
     Active Substance: LEUPROLIDE ACETATE
     Dosage: 1/2 DOSE; 0.5 UNITS
     Dates: start: 20140513

REACTIONS (2)
  - Therapeutic response decreased [Recovered/Resolved]
  - Product quality issue [Unknown]

NARRATIVE: CASE EVENT DATE: 201405
